APPROVED DRUG PRODUCT: LUTREPULSE KIT
Active Ingredient: GONADORELIN ACETATE
Strength: 0.8MG/VIAL
Dosage Form/Route: INJECTABLE;INJECTION
Application: N019687 | Product #001
Applicant: FERRING PHARMACEUTICALS INC
Approved: Oct 10, 1989 | RLD: No | RS: No | Type: DISCN